FAERS Safety Report 18531470 (Version 1)
Quarter: 2020Q4

REPORT INFORMATION
  Report Type: Report from Study
  Country: IN (occurrence: IN)
  Receive Date: 20201122
  Receipt Date: 20201122
  Transmission Date: 20210114
  Serious: Yes (Hospitalization)
  Sender: FDA-Public Use
  Company Number: IN-BIOGEN-2020BI00946655

PATIENT
  Age: 37 Year
  Sex: Male

DRUGS (4)
  1. OMNACORTIL (NOS) [Concomitant]
     Route: 048
     Dates: start: 20201114
  2. OMNACORTIL (NOS) [Concomitant]
     Route: 048
  3. OMNACORTIL (NOS) [Concomitant]
     Indication: MULTIPLE SCLEROSIS
     Route: 048
     Dates: start: 20201108, end: 20201111
  4. PLEGRIDY [Suspect]
     Active Substance: PEGINTERFERON BETA-1A
     Indication: MULTIPLE SCLEROSIS
     Route: 058
     Dates: start: 20200630, end: 20201028

REACTIONS (1)
  - Multiple sclerosis relapse [Recovered/Resolved]

NARRATIVE: CASE EVENT DATE: 20201102
